FAERS Safety Report 21636808 (Version 2)
Quarter: 2022Q4

REPORT INFORMATION
  Report Type: Other
  Country: DE (occurrence: DE)
  Receive Date: 20221124
  Receipt Date: 20221215
  Transmission Date: 20230113
  Serious: Yes (Other)
  Sender: FDA-Public Use
  Company Number: DE-CELLTRION INC.-2022DE019513

PATIENT

DRUGS (4)
  1. RITUXIMAB [Suspect]
     Active Substance: RITUXIMAB
     Indication: Diffuse large B-cell lymphoma
     Dosage: SECOND LINE WITH DA-EPOCH
     Route: 042
     Dates: start: 20220816, end: 20220926
  2. POLIVY [Suspect]
     Active Substance: POLATUZUMAB VEDOTIN-PIIQ
     Indication: Diffuse large B-cell lymphoma
     Dosage: THIRD LINE WITH RITUXIMAB
     Dates: start: 20220927, end: 20221001
  3. BENDAMUSTINE [Suspect]
     Active Substance: BENDAMUSTINE
     Indication: Follicular lymphoma
     Dosage: FIRST LINE WITH OBINUTUZUMAB
     Dates: start: 20220101, end: 20220701
  4. GAZYVA [Suspect]
     Active Substance: OBINUTUZUMAB
     Indication: Follicular lymphoma
     Dosage: FIRST LINE WITH BENDAMUSTINE
     Route: 042
     Dates: start: 20220101, end: 20220701

REACTIONS (5)
  - Disease progression [Not Recovered/Not Resolved]
  - Blood bilirubin increased [Recovering/Resolving]
  - Glomerular filtration rate increased [Recovered/Resolved]
  - Alanine aminotransferase increased [Recovering/Resolving]
  - Aspartate aminotransferase increased [Recovering/Resolving]
